FAERS Safety Report 5217139-3 (Version None)
Quarter: 2007Q1

REPORT INFORMATION
  Report Type: 
  Country: None (occurrence: None)
  Receive Date: 20070124
  Receipt Date: 20070118
  Transmission Date: 20070707
  Serious: Yes (Other)
  Sender: FDA-Public Use
  Company Number: 13636030

PATIENT

DRUGS (3)
  1. LAMIVUDINE [Suspect]
     Indication: HIV INFECTION
  2. EFAVIRENZ [Suspect]
     Indication: HIV INFECTION
  3. STAVUDINE [Suspect]
     Indication: HIV INFECTION

REACTIONS (5)
  - FACIAL WASTING [None]
  - FAT TISSUE INCREASED [None]
  - LIPOATROPHY [None]
  - LIPOHYPERTROPHY [None]
  - STRESS [None]
